FAERS Safety Report 5626342-X (Version None)
Quarter: 2008Q1

REPORT INFORMATION
  Report Type: 
  Country: None (occurrence: None)
  Receive Date: 20080212
  Receipt Date: 20080212
  Transmission Date: 20080703
  Serious: No
  Sender: FDA-Public Use
  Company Number: None

PATIENT

DRUGS (1)
  1. CLIMARA [Suspect]
     Indication: MENOPAUSAL DISORDER
     Dosage: ONCE Q WEEKLY LIFETIME

REACTIONS (1)
  - UNEVALUABLE EVENT [None]
